FAERS Safety Report 17135579 (Version 1)
Quarter: 2019Q4

REPORT INFORMATION
  Report Type: Spontaneous
  Country: GB (occurrence: GB)
  Receive Date: 20191210
  Receipt Date: 20191210
  Transmission Date: 20200122
  Serious: Yes (Other)
  Sender: FDA-Public Use
  Company Number: GB-MYLANLABS-2019M1122213

PATIENT
  Sex: Female

DRUGS (1)
  1. TAMOXIFEN 20 MG TABLETS [Suspect]
     Active Substance: TAMOXIFEN
     Indication: BREAST CANCER
     Dosage: UNK

REACTIONS (7)
  - Pollakiuria [Unknown]
  - Fatigue [Unknown]
  - Weight increased [Unknown]
  - Hot flush [Unknown]
  - Alcohol intolerance [Unknown]
  - Haemorrhage [Recovered/Resolved]
  - Uterine mass [Unknown]

NARRATIVE: CASE EVENT DATE: 201810
